FAERS Safety Report 19129659 (Version 1)
Quarter: 2021Q2

REPORT INFORMATION
  Report Type: Spontaneous
  Country: US (occurrence: US)
  Receive Date: 20210413
  Receipt Date: 20210413
  Transmission Date: 20210717
  Serious: No
  Sender: FDA-Public Use
  Company Number: US-TOPROL-202000059

PATIENT
  Age: 74 Year
  Sex: Female
  Weight: 62.6 kg

DRUGS (1)
  1. TOPROL XL [Suspect]
     Active Substance: METOPROLOL SUCCINATE
     Dosage: 25 MG TABLET SPLIT IN HALF
     Route: 048
     Dates: start: 20201019

REACTIONS (2)
  - Tongue dry [Unknown]
  - Incorrect dose administered [Unknown]
